FAERS Safety Report 4724509-6 (Version None)
Quarter: 2005Q3

REPORT INFORMATION
  Report Type: 
  Country: None (occurrence: None)
  Receive Date: 20050726
  Receipt Date: 20050708
  Transmission Date: 20060218
  Serious: Yes (Hospitalization)
  Sender: FDA-Public Use
  Company Number: MX-BOEHRINGER INGELHEIM PHARMACEUTICALS, INC.-2005-BP-11580MX

PATIENT
  Sex: Male
  Weight: 53.8 kg

DRUGS (6)
  1. AMPRENAVIR/RITONAVIR CAPSULES (TPV/RTV REFERENCE) [Suspect]
     Indication: HIV INFECTION
     Dosage: 1200/200 MG/MG
     Route: 048
     Dates: start: 20031117, end: 20050531
  2. TENOFOVIR [Concomitant]
     Indication: ADVERSE EVENT
     Route: 048
     Dates: start: 20031117, end: 20050531
  3. LAMIVUDINE [Concomitant]
     Indication: ADVERSE EVENT
     Route: 048
     Dates: start: 20041019, end: 20050531
  4. DIDANOSINE [Concomitant]
     Indication: ADVERSE EVENT
     Route: 048
     Dates: start: 20031117, end: 20050531
  5. FOLIC ACID [Concomitant]
     Indication: ANAEMIA
     Route: 048
     Dates: start: 20040728
  6. GANCYCLOVIR [Concomitant]
     Indication: INFECTION PROPHYLAXIS
     Route: 042
     Dates: start: 20050505, end: 20050513

REACTIONS (2)
  - CHORIORETINITIS [None]
  - COLITIS [None]
